FAERS Safety Report 7912249-1 (Version None)
Quarter: 2011Q4

REPORT INFORMATION
  Report Type: 
  Country: None (occurrence: None)
  Receive Date: 20111114
  Receipt Date: 20111108
  Transmission Date: 20120403
  Serious: Yes (Hospitalization)
  Sender: FDA-Public Use
  Company Number: CA-MERCK-1006USA00205

PATIENT
  Age: 53 Year
  Sex: Male
  Weight: 132 kg

DRUGS (10)
  1. DIAMICRON [Concomitant]
     Route: 048
  2. NEXIUM [Concomitant]
     Route: 048
  3. HYDROCHLOROTHIAZIDE [Concomitant]
     Route: 048
  4. LYRICA [Concomitant]
     Route: 048
  5. LIPITOR [Suspect]
     Indication: MYOCARDIAL INFARCTION
     Route: 048
     Dates: start: 19890101
  6. JANUVIA [Suspect]
     Indication: DIABETES MELLITUS
     Route: 048
  7. METHYLDOPA [Concomitant]
     Route: 048
  8. VITAMINS (UNSPECIFIED) [Concomitant]
     Route: 048
  9. ASPIRIN [Concomitant]
     Route: 048
  10. MICARDIS [Concomitant]
     Route: 048

REACTIONS (8)
  - BLOOD BILIRUBIN INCREASED [None]
  - BILIRUBIN CONJUGATED INCREASED [None]
  - JAUNDICE [None]
  - LIVER FUNCTION TEST ABNORMAL [None]
  - GAMMA-GLUTAMYLTRANSFERASE INCREASED [None]
  - ASPARTATE AMINOTRANSFERASE INCREASED [None]
  - DRUG INTERACTION [None]
  - ALANINE AMINOTRANSFERASE INCREASED [None]
